FAERS Safety Report 5524646-2 (Version None)
Quarter: 2007Q4

REPORT INFORMATION
  Report Type: 
  Country: None (occurrence: None)
  Receive Date: 20071123
  Receipt Date: 20071120
  Transmission Date: 20080405
  Serious: Yes (Hospitalization, Other)
  Sender: FDA-Public Use
  Company Number: CH-SHR-CH-2007-014944

PATIENT
  Age: 41 Year
  Sex: Female

DRUGS (2)
  1. MIRENA [Suspect]
     Dosage: 20 A?G/DAY, CONT
     Route: 015
     Dates: start: 20020215, end: 20070221
  2. ALL OTHER THERAPEUTIC PRODUCTS [Concomitant]
     Indication: UTERINE OPERATION

REACTIONS (5)
  - ANAEMIA OF PREGNANCY [None]
  - POSTPARTUM UTERINE SUBINVOLUTION [None]
  - PREGNANCY WITH CONTRACEPTIVE DEVICE [None]
  - RETAINED PLACENTA OR MEMBRANES [None]
  - VAGINAL HAEMORRHAGE [None]
